FAERS Safety Report 7823878-8 (Version None)
Quarter: 2011Q4

REPORT INFORMATION
  Report Type: 
  Country: None (occurrence: None)
  Receive Date: 20111018
  Receipt Date: 20111018
  Transmission Date: 20120403
  Serious: Yes (Death)
  Sender: FDA-Public Use
  Company Number: None

PATIENT
  Sex: Female
  Weight: 53.5244 kg

DRUGS (2)
  1. SEE ATTACHED [Concomitant]
  2. REVLIMID [Suspect]
     Indication: MYELODYSPLASTIC SYNDROME
     Dosage: 50MG PO QD
     Route: 048
     Dates: start: 20110829, end: 20110912

REACTIONS (15)
  - PYREXIA [None]
  - PANCYTOPENIA [None]
  - LUNG INFILTRATION [None]
  - BLOOD CREATININE INCREASED [None]
  - ACIDOSIS [None]
  - BLOOD CULTURE POSITIVE [None]
  - HYPOTENSION [None]
  - RASH [None]
  - DRUG INEFFECTIVE [None]
  - RESPIRATORY FAILURE [None]
  - BLOOD SODIUM DECREASED [None]
  - DYSPNOEA [None]
  - KLEBSIELLA INFECTION [None]
  - CHOLELITHIASIS [None]
  - ATRIAL FIBRILLATION [None]
